FAERS Safety Report 20626920 (Version 1)
Quarter: 2022Q1

REPORT INFORMATION
  Report Type: Spontaneous
  Country: CN (occurrence: CN)
  Receive Date: 20220323
  Receipt Date: 20220323
  Transmission Date: 20220423
  Serious: Yes (Other)
  Sender: FDA-Public Use
  Company Number: CN-ELI_LILLY_AND_COMPANY-CN202203006492

PATIENT
  Age: 43 Year
  Sex: Male

DRUGS (5)
  1. ALIMTA [Suspect]
     Active Substance: PEMETREXED DISODIUM
     Indication: Lung carcinoma cell type unspecified stage 0
     Dosage: 0.85 G, SINGLE
     Route: 041
     Dates: start: 20220224, end: 20220224
  2. CARBOPLATIN [Suspect]
     Active Substance: CARBOPLATIN
     Indication: Lung carcinoma cell type unspecified stage 0
     Dosage: 450 MG, SINGLE
     Route: 041
     Dates: start: 20220224, end: 20220224
  3. BEVACIZUMAB [Suspect]
     Active Substance: BEVACIZUMAB
     Indication: Lung carcinoma cell type unspecified stage 0
     Dosage: 500 MG, SINGLE
     Route: 041
     Dates: start: 20220224, end: 20220224
  4. SODIUM CHLORIDE [Concomitant]
     Active Substance: SODIUM CHLORIDE
     Indication: Lung carcinoma cell type unspecified stage 0
     Dosage: 100 ML, SINGLE
     Route: 041
     Dates: start: 20220224, end: 20220224
  5. SODIUM CHLORIDE [Concomitant]
     Active Substance: SODIUM CHLORIDE
     Dosage: 100 ML, SINGLE
     Route: 041
     Dates: start: 20220224, end: 20220224

REACTIONS (3)
  - Paralysis [Unknown]
  - Pruritus [Unknown]
  - Off label use [Unknown]

NARRATIVE: CASE EVENT DATE: 20220224
